FAERS Safety Report 8178058-6 (Version None)
Quarter: 2012Q1

REPORT INFORMATION
  Report Type: 
  Country: None (occurrence: None)
  Receive Date: 20120301
  Receipt Date: 20120227
  Transmission Date: 20120608
  Serious: No
  Sender: FDA-Public Use
  Company Number: US-PFIZER INC-2012026758

PATIENT
  Sex: Female
  Weight: 61.224 kg

DRUGS (2)
  1. LEVOXYL [Interacting]
     Indication: THYROID DISORDER
     Dosage: UNK
  2. ESTRING [Suspect]
     Indication: HORMONE REPLACEMENT THERAPY
     Dosage: 2 MG, EVERY 3 MONTHS
     Route: 067
     Dates: start: 20120112

REACTIONS (7)
  - DRUG INTERACTION [None]
  - DISCOMFORT [None]
  - PRURITUS [None]
  - BACK PAIN [None]
  - DRUG INEFFECTIVE [None]
  - HEADACHE [None]
  - BURNING SENSATION [None]
